FAERS Safety Report 9837456 (Version 1)
Quarter: 2014Q1

REPORT INFORMATION
  Report Type: Spontaneous
  Country: US (occurrence: US)
  Receive Date: 20140123
  Receipt Date: 20140123
  Transmission Date: 20141002
  Serious: Yes (Hospitalization)
  Sender: FDA-Public Use
  Company Number: US-BAYER-2014-009622

PATIENT
  Age: 33 Year
  Sex: Female
  Weight: 85.26 kg

DRUGS (18)
  1. YAZ [Suspect]
  2. YASMIN [Suspect]
  3. OCELLA [Suspect]
  4. TRIAMCINOLONE [Concomitant]
     Indication: RASH
     Dosage: 0.1 %, BID
  5. MORPHINE [Concomitant]
  6. ATIVAN [Concomitant]
  7. DEXAMETHASONE [Concomitant]
  8. MAXAIR [Concomitant]
  9. PERCOCET [Concomitant]
     Dosage: 5/325, 1-2 Q (INTERPRETED AS EVERY) 4 HOURS PRN (INTERPRETED AS AS NEEDED)
     Route: 048
  10. CYCLOBENZAPRINE [Concomitant]
     Indication: MUSCLE SPASMS
     Dosage: 5 MG, 8 HOURS PRN
  11. IBUPROFEN [Concomitant]
     Dosage: 800 MG, Q 6 HOURS PRN
     Route: 048
  12. MULTIVITAMIN [Concomitant]
     Dosage: DAILY
     Route: 048
  13. TOPAMAX [Concomitant]
     Dosage: 50 MG, BID
     Route: 048
  14. MAGSAL [Concomitant]
     Indication: MIGRAINE
     Dosage: 10 MG, UNK
     Route: 048
  15. MAXALT [Concomitant]
  16. FISH OIL [Concomitant]
  17. FIBER [Concomitant]
  18. MEDROL [Concomitant]

REACTIONS (1)
  - Deep vein thrombosis [None]
